FAERS Safety Report 6051200-9 (Version None)
Quarter: 2009Q1

REPORT INFORMATION
  Report Type: 
  Country: None (occurrence: None)
  Receive Date: 20090121
  Receipt Date: 20090121
  Transmission Date: 20090719
  Serious: No
  Sender: FDA-Public Use
  Company Number: None

PATIENT
  Age: 33 Year
  Sex: Female
  Weight: 73.9 kg

DRUGS (1)
  1. TEMSIROLIMUS [Suspect]
     Indication: CHEMOTHERAPY
     Dosage: 25 MG X1 IV
     Route: 042
     Dates: start: 20081015

REACTIONS (2)
  - CHEST DISCOMFORT [None]
  - DYSPNOEA [None]
